FAERS Safety Report 8176084-4 (Version None)
Quarter: 2012Q1

REPORT INFORMATION
  Report Type: 
  Country: None (occurrence: None)
  Receive Date: 20120301
  Receipt Date: 20120220
  Transmission Date: 20120608
  Serious: Yes (Hospitalization)
  Sender: FDA-Public Use
  Company Number: FR-BRISTOL-MYERS SQUIBB COMPANY-16411498

PATIENT
  Age: 78 Year
  Sex: Female

DRUGS (7)
  1. RABEPRAZOLE SODIUM [Concomitant]
  2. COUMADIN [Suspect]
     Dates: start: 20111206, end: 20111212
  3. FURADANTIN [Concomitant]
  4. BISOPROLOL FUMARATE [Concomitant]
  5. HEPARIN SODIUM [Suspect]
     Dates: start: 20111206, end: 20111212
  6. PERINDOPRIL ERBUMINE [Concomitant]
  7. ATORVASTATIN [Concomitant]

REACTIONS (2)
  - HAEMATOMA [None]
  - ANAEMIA [None]
